FAERS Safety Report 14615701 (Version 2)
Quarter: 2018Q1

REPORT INFORMATION
  Report Type: Report from Study
  Country: US (occurrence: US)
  Receive Date: 20180309
  Receipt Date: 20180310
  Transmission Date: 20180509
  Serious: No
  Sender: FDA-Public Use
  Company Number: US-ASTRAZENECA-2017SE98428

PATIENT
  Age: 843 Month
  Sex: Female
  Weight: 54.9 kg

DRUGS (15)
  1. TAGRISSO [Suspect]
     Active Substance: OSIMERTINIB
     Indication: LUNG NEOPLASM MALIGNANT
     Route: 048
     Dates: start: 20170902
  2. FOLIC ACID. [Concomitant]
     Active Substance: FOLIC ACID
     Indication: SKIN DISORDER
     Route: 048
     Dates: start: 201505
  3. DOXYCYCLINE. [Concomitant]
     Active Substance: DOXYCYCLINE
     Indication: ACNE
     Route: 048
     Dates: start: 201703
  4. ALPRAZOLAM. [Concomitant]
     Active Substance: ALPRAZOLAM
     Indication: ANXIETY
     Dosage: 1.0MG AS REQUIRED
     Route: 065
  5. VITAMIN B6 [Concomitant]
     Active Substance: PYRIDOXINE HYDROCHLORIDE
     Indication: SKIN DISORDER
     Route: 048
     Dates: start: 201505
  6. VITAMIN B12 [Concomitant]
     Active Substance: CYANOCOBALAMIN
     Indication: SKIN DISORDER
     Route: 048
     Dates: start: 201505
  7. VITAMIN B12 [Concomitant]
     Active Substance: CYANOCOBALAMIN
     Indication: SUPPLEMENTATION THERAPY
     Route: 048
     Dates: start: 201505
  8. DOXYCYCLINE. [Concomitant]
     Active Substance: DOXYCYCLINE
     Indication: SKIN DISORDER
     Route: 048
     Dates: start: 201703
  9. TURMERIC [Concomitant]
     Active Substance: HERBALS\TURMERIC
     Indication: SUPPLEMENTATION THERAPY
     Route: 048
     Dates: start: 201505
  10. TAGRISSO [Suspect]
     Active Substance: OSIMERTINIB
     Indication: LUNG NEOPLASM MALIGNANT
     Route: 048
     Dates: start: 20170902
  11. VITAMIN C [Concomitant]
     Active Substance: ASCORBIC ACID
     Indication: THERAPEUTIC PROCEDURE
     Route: 048
  12. VITAMIN B6 [Concomitant]
     Active Substance: PYRIDOXINE HYDROCHLORIDE
     Indication: SUPPLEMENTATION THERAPY
     Route: 048
     Dates: start: 201505
  13. TURMERIC [Concomitant]
     Active Substance: HERBALS\TURMERIC
     Indication: PROPHYLAXIS
     Route: 048
     Dates: start: 201505
  14. FOLIC ACID. [Concomitant]
     Active Substance: FOLIC ACID
     Indication: SUPPLEMENTATION THERAPY
     Route: 048
     Dates: start: 201505
  15. TAGRISSO [Suspect]
     Active Substance: OSIMERTINIB
     Indication: LUNG CARCINOMA CELL TYPE UNSPECIFIED STAGE 0
     Route: 048
     Dates: start: 20170902

REACTIONS (10)
  - Tumour marker increased [Unknown]
  - Herpes zoster [Unknown]
  - Nail bed disorder [Not Recovered/Not Resolved]
  - Wound haemorrhage [Recovered/Resolved]
  - Onychomycosis [Not Recovered/Not Resolved]
  - Constipation [Unknown]
  - Hair texture abnormal [Not Recovered/Not Resolved]
  - Platelet count decreased [Unknown]
  - Lymph node pain [Not Recovered/Not Resolved]
  - Nail toxicity [Not Recovered/Not Resolved]

NARRATIVE: CASE EVENT DATE: 201802
